FAERS Safety Report 21134288 (Version 1)
Quarter: 2022Q3

REPORT INFORMATION
  Report Type: Spontaneous
  Country: US (occurrence: US)
  Receive Date: 20220726
  Receipt Date: 20220726
  Transmission Date: 20221027
  Serious: Yes (Other)
  Sender: FDA-Public Use
  Company Number: US-SA-SAC20220722001582

PATIENT
  Age: 60 Year
  Sex: Female

DRUGS (1)
  1. ZANTAC [Suspect]
     Active Substance: RANITIDINE HYDROCHLORIDE
     Indication: Gastrooesophageal reflux disease
     Dosage: UNK, QD (DOSE: UNKNOWN AT THIS TIME, QD)
     Dates: start: 200707, end: 201911

REACTIONS (1)
  - Pancreatic carcinoma stage I [Recovering/Resolving]

NARRATIVE: CASE EVENT DATE: 20210326
